FAERS Safety Report 12524652 (Version 1)
Quarter: 2016Q3

REPORT INFORMATION
  Report Type: Spontaneous
  Country: IS (occurrence: IS)
  Receive Date: 20160704
  Receipt Date: 20160704
  Transmission Date: 20161109
  Serious: Yes (Other)
  Sender: FDA-Public Use
  Company Number: IS-ACTAVIS-2016-14542

PATIENT
  Age: 41 Year
  Sex: Female

DRUGS (1)
  1. TRAMOL-L [Suspect]
     Active Substance: TRAMADOL
     Indication: ARTHRALGIA
     Dosage: 150 MG, TOTAL
     Route: 048
     Dates: start: 20151118, end: 20151118

REACTIONS (4)
  - Stupor [Recovered/Resolved]
  - Heart rate decreased [Recovered/Resolved]
  - Hypoaesthesia [Recovered/Resolved]
  - Blood pressure decreased [Recovered/Resolved]

NARRATIVE: CASE EVENT DATE: 20151118
